FAERS Safety Report 17134926 (Version 1)
Quarter: 2019Q4

REPORT INFORMATION
  Report Type: Spontaneous
  Country: US (occurrence: US)
  Receive Date: 20191210
  Receipt Date: 20191210
  Transmission Date: 20200122
  Serious: No
  Sender: FDA-Public Use
  Company Number: US-TEVA-2019-US-1142150

PATIENT
  Sex: Male

DRUGS (18)
  1. SUMATRIPTAN SUCCINATE 100 MG TABLET [Concomitant]
  2. NAPROXEN 250 MG TABLET [Concomitant]
  3. GABAPENTIN 300 MG CAPSULE [Concomitant]
     Active Substance: GABAPENTIN
  4. LAMICTAL 200 MG TABLET [Concomitant]
  5. SUMATRIPTAN SUCCINATE. [Concomitant]
     Active Substance: SUMATRIPTAN SUCCINATE
  6. INDERAL XL 80 MG CAP ER 24H [Concomitant]
  7. FEVERFEW EXTRACT 4:1 POWDER [Concomitant]
  8. SYMBICORT 80-4.5 MCG HFA AER AD [Concomitant]
     Dosage: 80-4.5 MCG
  9. PANTOPRAZOLE SODIUM 40 MG TABLET DR [Concomitant]
  10. VRAYLAR 4.5 MG CAPSULE [Concomitant]
  11. NUPLAZID 34 MG CAPSULE [Concomitant]
  12. MAGNESIUM 400 MG TABLET [Concomitant]
  13. NALTREXONE HCL 50 MG TABLET [Concomitant]
  14. AUSTEDO [Suspect]
     Active Substance: DEUTETRABENAZINE
     Indication: HUNTINGTON^S DISEASE
     Dosage: 24 MILLIGRAM DAILY;
     Route: 048
     Dates: start: 201801
  15. AMITRIPTYLINE HCL 50 MG TABLET [Concomitant]
  16. VITAMIN B-2 100 MG TABLET [Concomitant]
  17. QUETIAPINE FUMARATE 100 MG TABLET [Concomitant]
  18. NAC 600 MG CAPSULE [Concomitant]

REACTIONS (2)
  - Decreased interest [Unknown]
  - Depression [Unknown]
